FAERS Safety Report 7783474-8 (Version None)
Quarter: 2011Q3

REPORT INFORMATION
  Report Type: 
  Country: None (occurrence: None)
  Receive Date: 20110928
  Receipt Date: 20110923
  Transmission Date: 20111222
  Serious: Yes (Other)
  Sender: FDA-Public Use
  Company Number: US-PFIZER INC-2011227793

PATIENT
  Sex: Male
  Weight: 92.971 kg

DRUGS (3)
  1. VITAMIN B-12 [Concomitant]
     Dosage: UNK, 1X/DAY
  2. RELPAX [Suspect]
     Indication: MIGRAINE
     Dosage: 40 MG, AS NEEDED
     Route: 048
     Dates: start: 20010101
  3. MAGNESIUM [Concomitant]
     Dosage: UNK, 1X/DAY

REACTIONS (2)
  - BLOOD CHOLESTEROL INCREASED [None]
  - BLOOD TRIGLYCERIDES INCREASED [None]
